APPROVED DRUG PRODUCT: DOXYLAMINE SUCCINATE
Active Ingredient: DOXYLAMINE SUCCINATE
Strength: 25MG
Dosage Form/Route: TABLET;ORAL
Application: A040564 | Product #001
Applicant: LNK INTERNATIONAL INC
Approved: Aug 27, 2004 | RLD: No | RS: No | Type: OTC